FAERS Safety Report 14985821 (Version 6)
Quarter: 2019Q3

REPORT INFORMATION
  Report Type: Spontaneous
  Country: FR (occurrence: FR)
  Receive Date: 20180607
  Receipt Date: 20190916
  Transmission Date: 20191004
  Serious: Yes (Other)
  Sender: FDA-Public Use
  Company Number: FR-PFIZER INC-2018228615

PATIENT
  Age: 49 Year
  Sex: Female

DRUGS (5)
  1. TRASTUZUMAB. [Concomitant]
     Active Substance: TRASTUZUMAB
     Indication: METASTASES TO PERITONEUM
     Dosage: UNK, CYCLIC
  2. PERTUZUMAB. [Concomitant]
     Active Substance: PERTUZUMAB
     Indication: METASTASES TO PERITONEUM
     Dosage: UNK, CYCLIC
  3. OXALIPLATIN. [Suspect]
     Active Substance: OXALIPLATIN
     Indication: METASTASES TO PERITONEUM
     Dosage: UNK UNK, 6 CYCLIC
  4. FLUOROURACIL. [Concomitant]
     Active Substance: FLUOROURACIL
     Indication: METASTASES TO PERITONEUM
     Dosage: UNK UNK, CYCLIC
  5. FOLINIC ACID [Concomitant]
     Active Substance: LEUCOVORIN
     Indication: METASTASES TO PERITONEUM
     Dosage: UNK UNK, CYCLIC

REACTIONS (1)
  - Neurotoxicity [Unknown]
